FAERS Safety Report 13628449 (Version 1)
Quarter: 2017Q2

REPORT INFORMATION
  Report Type: Spontaneous
  Country: US (occurrence: US)
  Receive Date: 20170607
  Receipt Date: 20170607
  Transmission Date: 20170830
  Serious: No
  Sender: FDA-Public Use
  Company Number: US-TARO-2017TAR00137

PATIENT
  Sex: Female

DRUGS (2)
  1. CHILDRENS CETIRIZINE HYDROCHLORIDE SUGAR FREE GRAPE [Suspect]
     Active Substance: CETIRIZINE HYDROCHLORIDE
     Indication: NASOPHARYNGITIS
  2. TESSALON [Suspect]
     Active Substance: BENZONATATE
     Indication: COUGH

REACTIONS (2)
  - Off label use [Unknown]
  - Somnolence [Not Recovered/Not Resolved]
